FAERS Safety Report 7198188-5 (Version None)
Quarter: 2010Q4

REPORT INFORMATION
  Report Type: 
  Country: None (occurrence: None)
  Receive Date: 20101227
  Receipt Date: 20101213
  Transmission Date: 20110411
  Serious: Yes (Hospitalization, Other)
  Sender: FDA-Public Use
  Company Number: PHHO2008JP04973

PATIENT
  Sex: Male
  Weight: 87 kg

DRUGS (21)
  1. CLOZAPINE [Suspect]
     Indication: SCHIZOPHRENIA
     Dosage: UNK, UNK
     Route: 048
     Dates: start: 20060627
  2. CLOZAPINE [Suspect]
     Dosage: 225MG
     Route: 048
     Dates: start: 20080514, end: 20080527
  3. CLOZAPINE [Suspect]
     Dosage: 250MG
     Route: 048
     Dates: start: 20080528, end: 20080702
  4. CLOZAPINE [Suspect]
     Dosage: 225 MG DAILY
     Route: 048
     Dates: start: 20080703, end: 20080708
  5. CLOZAPINE [Suspect]
     Dosage: 200 MG DAILY
     Route: 048
     Dates: start: 20080709
  6. SIMVASTATIN [Concomitant]
  7. PURSENNID [Concomitant]
  8. MYSLEE [Concomitant]
  9. GASTER [Concomitant]
  10. AMOBAN [Concomitant]
  11. LEXOTAN [Concomitant]
     Dosage: UNK
  12. DALACIN T [Concomitant]
  13. SULFUR [Concomitant]
  14. CAMPHOR [Concomitant]
  15. LENDORMIN [Concomitant]
  16. EVAMYL [Concomitant]
  17. RHYTHMY [Concomitant]
  18. GENTACIN [Concomitant]
  19. LOXONIN [Concomitant]
  20. SEPAZON [Concomitant]
     Indication: SCHIZOPHRENIA
     Dosage: UNK
  21. STREPTOMYCIN SULFATE [Concomitant]
     Indication: ABDOMINAL PAIN UPPER

REACTIONS (21)
  - ABNORMAL BEHAVIOUR [None]
  - AGITATION [None]
  - ANXIETY [None]
  - APATHY [None]
  - BLOOD CREATINE PHOSPHOKINASE INCREASED [None]
  - CONDITION AGGRAVATED [None]
  - DELUSION [None]
  - DEPRESSION [None]
  - DIZZINESS [None]
  - EMOTIONAL DISORDER [None]
  - HALLUCINATION [None]
  - LOGORRHOEA [None]
  - MENTAL STATUS CHANGES [None]
  - OVERDOSE [None]
  - PSYCHOMOTOR HYPERACTIVITY [None]
  - SALIVARY HYPERSECRETION [None]
  - SCHIZOPHRENIA [None]
  - SEDATION [None]
  - STRESS [None]
  - SUICIDAL IDEATION [None]
  - TREATMENT NONCOMPLIANCE [None]
